FAERS Safety Report 17161376 (Version 1)
Quarter: 2019Q4

REPORT INFORMATION
  Report Type: Spontaneous
  Country: SE (occurrence: SE)
  Receive Date: 20191216
  Receipt Date: 20191216
  Transmission Date: 20200122
  Serious: Yes (Hospitalization)
  Sender: FDA-Public Use
  Company Number: SE-009507513-1912SWE004041

PATIENT
  Sex: Female

DRUGS (3)
  1. VENLAFAXINE HYDROCHLORIDE. [Suspect]
     Active Substance: VENLAFAXINE HYDROCHLORIDE
     Dosage: 4-5 PIECES AT 225 MG
     Dates: start: 20180924, end: 20180924
  2. MIRTAZAPINE. [Suspect]
     Active Substance: MIRTAZAPINE
     Dosage: 150 MILLIGRAM, 10 PIECES AT 15 MG
     Dates: start: 20180924, end: 20180924
  3. PROPAVAN [Suspect]
     Active Substance: PROPIOMAZINE
     Dosage: 500 MILLIGRAM, 20 PIECES AT 25 MG
     Route: 048
     Dates: start: 20180924, end: 20180924

REACTIONS (4)
  - Depressed level of consciousness [Unknown]
  - Miosis [Unknown]
  - Intentional self-injury [Unknown]
  - Intentional overdose [Unknown]

NARRATIVE: CASE EVENT DATE: 20180924
